FAERS Safety Report 11289752 (Version 1)
Quarter: 2015Q3

REPORT INFORMATION
  Report Type: Spontaneous
  Country: US (occurrence: US)
  Receive Date: 20150721
  Receipt Date: 20150721
  Transmission Date: 20151125
  Serious: Yes (Hospitalization, Other)
  Sender: FDA-Public Use
  Company Number: US-TEVA-580189USA

PATIENT
  Age: 50 Year
  Sex: Male

DRUGS (2)
  1. BACTRIM [Suspect]
     Active Substance: SULFAMETHOXAZOLE\TRIMETHOPRIM
     Indication: GOUTY ARTHRITIS
     Dosage: A 10 DAY COURSE
     Route: 065
  2. METHYLPREDNISOLONE. [Concomitant]
     Active Substance: METHYLPREDNISOLONE
     Indication: GOUTY ARTHRITIS
     Dosage: A 10 DAY COURSE
     Route: 065

REACTIONS (1)
  - Organising pneumonia [Recovering/Resolving]
